FAERS Safety Report 10563488 (Version 1)
Quarter: 2014Q4

REPORT INFORMATION
  Report Type: Spontaneous
  Country: US (occurrence: US)
  Receive Date: 20141104
  Receipt Date: 20141104
  Transmission Date: 20150529
  Serious: Yes (Other)
  Sender: FDA-Public Use
  Company Number: US-BAYER-2014-162498

PATIENT
  Age: 75 Year
  Sex: Male
  Weight: 86 kg

DRUGS (2)
  1. ALEVE [Suspect]
     Active Substance: NAPROXEN SODIUM
     Indication: ANALGESIC THERAPY
     Dosage: 2 DF, UNK
     Route: 048
  2. CIALIS [Suspect]
     Active Substance: TADALAFIL
     Dosage: UNK

REACTIONS (2)
  - Visual impairment [Not Recovered/Not Resolved]
  - Vision blurred [Unknown]

NARRATIVE: CASE EVENT DATE: 201410
